FAERS Safety Report 5242181-6 (Version None)
Quarter: 2007Q1

REPORT INFORMATION
  Report Type: 
  Country: None (occurrence: None)
  Receive Date: 20070213
  Receipt Date: 20070206
  Transmission Date: 20070707
  Serious: Yes (Death)
  Sender: FDA-Public Use
  Company Number: LTI2007A00013

PATIENT
  Age: 61 Year
  Sex: Male

DRUGS (4)
  1. ACTOS [Suspect]
     Indication: DIABETES MELLITUS NON-INSULIN-DEPENDENT
     Dosage: 15 MG (15 MG, 1 IN 1 D) ORAL
     Route: 048
     Dates: start: 20061024
  2. METHOTREXATE [Concomitant]
  3. ZOLOFT [Concomitant]
  4. PLAVIX (CLOPIGOGREL SULFATE) [Concomitant]

REACTIONS (1)
  - DEATH [None]
